FAERS Safety Report 25339293 (Version 1)
Quarter: 2025Q2

REPORT INFORMATION
  Report Type: Report from Study
  Country: SE (occurrence: SE)
  Receive Date: 20250521
  Receipt Date: 20250521
  Transmission Date: 20250717
  Serious: Yes (Other)
  Sender: JOHNSON AND JOHNSON
  Company Number: SE-JNJFOC-20250520723

PATIENT

DRUGS (19)
  1. TOPIRAMATE [Suspect]
     Active Substance: TOPIRAMATE
     Indication: Epilepsy
     Route: 065
  2. BRIVARACETAM [Suspect]
     Active Substance: BRIVARACETAM
  3. CANNABIDIOL [Suspect]
     Active Substance: CANNABIDIOL
  4. CARBAMAZEPINE [Suspect]
     Active Substance: CARBAMAZEPINE
  5. CLOBAZAM [Suspect]
     Active Substance: CLOBAZAM
  6. CLONAZEPAM [Suspect]
     Active Substance: CLONAZEPAM
  7. GABAPENTIN [Suspect]
     Active Substance: GABAPENTIN
  8. LACOSAMIDE [Suspect]
     Active Substance: LACOSAMIDE
  9. LAMOTRIGINE [Suspect]
     Active Substance: LAMOTRIGINE
  10. LEVETIRACETAM [Suspect]
     Active Substance: LEVETIRACETAM
  11. OXCARBAZEPINE [Suspect]
     Active Substance: OXCARBAZEPINE
  12. PERAMPANEL [Suspect]
     Active Substance: PERAMPANEL
  13. PHENOBARBITAL [Suspect]
     Active Substance: PHENOBARBITAL
  14. PHENYTOIN [Suspect]
     Active Substance: PHENYTOIN
  15. RUFINAMIDE [Suspect]
     Active Substance: RUFINAMIDE
  16. STIRIPENTOL [Suspect]
     Active Substance: STIRIPENTOL
  17. VALPROATE [Suspect]
     Active Substance: VALPROIC ACID
  18. VIGABATRIN [Suspect]
     Active Substance: VIGABATRIN
  19. ZONISAMIDE [Suspect]
     Active Substance: ZONISAMIDE

REACTIONS (1)
  - Leukopenia [Unknown]
